FAERS Safety Report 23675204 (Version 1)
Quarter: 2024Q1

REPORT INFORMATION
  Report Type: Report from Study
  Country: US (occurrence: US)
  Receive Date: 20240326
  Receipt Date: 20240326
  Transmission Date: 20240410
  Serious: Yes (Hospitalization)
  Sender: FDA-Public Use
  Company Number: US-ABBVIE-5691795

PATIENT
  Sex: Male

DRUGS (1)
  1. HUMIRA [Suspect]
     Active Substance: ADALIMUMAB
     Indication: Crohn^s disease
     Route: 058
     Dates: start: 20240219

REACTIONS (3)
  - Decreased appetite [Unknown]
  - Crohn^s disease [Unknown]
  - Malnutrition [Unknown]

NARRATIVE: CASE EVENT DATE: 20240101
